FAERS Safety Report 6578285-5 (Version None)
Quarter: 2010Q1

REPORT INFORMATION
  Report Type: 
  Country: None (occurrence: None)
  Receive Date: 20100211
  Receipt Date: 20100203
  Transmission Date: 20100710
  Serious: Yes (Other)
  Sender: FDA-Public Use
  Company Number: B0631382A

PATIENT
  Sex: Male

DRUGS (5)
  1. PAROXETINE HCL [Suspect]
     Indication: DRUG USE FOR UNKNOWN INDICATION
     Dosage: 30MG PER DAY
     Route: 065
     Dates: start: 19990101
  2. LORAZEPAM [Concomitant]
     Indication: ANXIETY
  3. RISPERIDONE [Concomitant]
     Indication: ANXIETY
  4. UNKNOWN DRUG [Concomitant]
     Indication: BLOOD PRESSURE
  5. UNKNOWN DRUG [Concomitant]

REACTIONS (16)
  - ABNORMAL BEHAVIOUR [None]
  - AGGRESSION [None]
  - AGITATION [None]
  - ANXIETY [None]
  - CRYING [None]
  - DEPENDENCE [None]
  - DEPRESSION [None]
  - HYPERSOMNIA [None]
  - IMPULSIVE BEHAVIOUR [None]
  - LACRIMATION INCREASED [None]
  - MOOD SWINGS [None]
  - OBSESSIVE-COMPULSIVE DISORDER [None]
  - PANIC DISORDER [None]
  - PHOBIA [None]
  - RESTLESSNESS [None]
  - SEROTONIN SYNDROME [None]
